FAERS Safety Report 7597217-4 (Version None)
Quarter: 2011Q3

REPORT INFORMATION
  Report Type: 
  Country: None (occurrence: None)
  Receive Date: 20110708
  Receipt Date: 20100930
  Transmission Date: 20111222
  Serious: No
  Sender: FDA-Public Use
  Company Number: US-GLAXOSMITHKLINE-A0884239A

PATIENT
  Age: 58 Year
  Sex: Female

DRUGS (6)
  1. FLOVENT [Suspect]
     Route: 055
  2. ASPIRIN [Concomitant]
  3. PROVENTIL [Concomitant]
  4. TRIAMTERENE AND HYDROCHLOROTHIAZIDE [Concomitant]
  5. ACCOLATE [Concomitant]
  6. ESTRACE [Concomitant]

REACTIONS (3)
  - FATIGUE [None]
  - PALPITATIONS [None]
  - DYSPNOEA [None]
